FAERS Safety Report 5858559-3 (Version None)
Quarter: 2008Q3

REPORT INFORMATION
  Report Type: 
  Country: None (occurrence: None)
  Receive Date: 20080826
  Receipt Date: 20080814
  Transmission Date: 20090109
  Serious: Yes (Other)
  Sender: FDA-Public Use
  Company Number: US-PFIZER INC-2008061619

PATIENT
  Sex: Male
  Weight: 152 kg

DRUGS (3)
  1. LYRICA [Suspect]
     Indication: DIABETIC NEUROPATHY
     Route: 048
  2. INSULIN [Suspect]
  3. ALL OTHER THERAPEUTIC PRODUCTS [Concomitant]

REACTIONS (6)
  - DISORIENTATION [None]
  - DRY MOUTH [None]
  - HYPERHIDROSIS [None]
  - HYPOGLYCAEMIA [None]
  - SOMNOLENCE [None]
  - WEIGHT DECREASED [None]
